FAERS Safety Report 12716034 (Version 1)
Quarter: 2016Q3

REPORT INFORMATION
  Report Type: Spontaneous
  Country: US (occurrence: US)
  Receive Date: 20160906
  Receipt Date: 20160906
  Transmission Date: 20161109
  Serious: No
  Sender: FDA-Public Use
  Company Number: US-BIOGEN-2016BI00283741

PATIENT
  Sex: Male

DRUGS (1)
  1. TECFIDERA [Suspect]
     Active Substance: DIMETHYL FUMARATE
     Indication: MULTIPLE SCLEROSIS
     Route: 065
     Dates: start: 20160811

REACTIONS (6)
  - Burning sensation [Recovered/Resolved]
  - Headache [Recovered/Resolved]
  - Muscle tightness [Recovered/Resolved]
  - Paraesthesia [Recovered/Resolved]
  - Hemianaesthesia [Recovered/Resolved]
  - Back pain [Recovered/Resolved]
